FAERS Safety Report 22304974 (Version 2)
Quarter: 2023Q2

REPORT INFORMATION
  Report Type: Report from Study
  Country: CA (occurrence: CA)
  Receive Date: 20230510
  Receipt Date: 20230605
  Transmission Date: 20230721
  Serious: Yes (Other)
  Sender: FDA-Public Use
  Company Number: CA-002147023-NVSC2023CA092442

PATIENT
  Age: 80 Year
  Sex: Female

DRUGS (3)
  1. MONTELUKAST [Suspect]
     Active Substance: MONTELUKAST SODIUM
     Indication: Urticaria
     Dosage: 10 MG, QD
     Route: 048
     Dates: start: 202211
  2. MONTELUKAST [Suspect]
     Active Substance: MONTELUKAST SODIUM
     Indication: Chronic spontaneous urticaria
  3. BILASTINE [Suspect]
     Active Substance: BILASTINE
     Indication: Urticaria
     Dosage: 20 MG, QD (2 DF, QD)
     Route: 065
     Dates: start: 202211

REACTIONS (6)
  - Dementia Alzheimer^s type [Unknown]
  - Feeling hot [Unknown]
  - Rash [Unknown]
  - Pruritus [Unknown]
  - Urticaria [Unknown]
  - Drug ineffective [Unknown]

NARRATIVE: CASE EVENT DATE: 20230201
